FAERS Safety Report 4498223-9 (Version None)
Quarter: 2004Q4

REPORT INFORMATION
  Report Type: 
  Country: None (occurrence: None)
  Receive Date: 20041110
  Receipt Date: 20041104
  Transmission Date: 20050328
  Serious: Yes (Hospitalization)
  Sender: FDA-Public Use
  Company Number: US-MERCK-0411USA00782

PATIENT
  Age: 73 Year
  Sex: Female

DRUGS (3)
  1. VIOXX [Suspect]
     Indication: POST PROCEDURAL PAIN
     Route: 048
     Dates: start: 20040911, end: 20040901
  2. LESCOL [Concomitant]
     Route: 065
  3. VERAPAMIL [Concomitant]
     Route: 065

REACTIONS (2)
  - SUTURE RUPTURE [None]
  - VOMITING [None]
